FAERS Safety Report 9079038 (Version 1)
Quarter: 2013Q1

REPORT INFORMATION
  Report Type: Report from Study
  Country: US (occurrence: US)
  Receive Date: 20130130
  Receipt Date: 20130130
  Transmission Date: 20140127
  Serious: No
  Sender: FDA-Public Use
  Company Number: US-ABBOTT-12P-163-0978373-00

PATIENT
  Sex: Female
  Weight: 52.21 kg

DRUGS (4)
  1. HUMIRA [Suspect]
     Indication: PSORIASIS
     Dates: start: 20110912, end: 201112
  2. LUNESTA [Concomitant]
     Indication: INSOMNIA
  3. XANAX [Concomitant]
     Indication: ANXIETY
  4. PERCOCET (NON-ABBOTT) [Concomitant]
     Indication: PAIN

REACTIONS (1)
  - Drug ineffective [Unknown]
